FAERS Safety Report 8925578 (Version 2)
Quarter: 2013Q1

REPORT INFORMATION
  Report Type: Spontaneous
  Country: AU (occurrence: AU)
  Receive Date: 20121126
  Receipt Date: 20130115
  Transmission Date: 20140127
  Serious: No
  Sender: FDA-Public Use
  Company Number: AU-PFIZER INC-2012291933

PATIENT
  Age: 38 Year
  Sex: Female

DRUGS (4)
  1. FLUOROURACIL [Suspect]
     Indication: COLON CANCER
     Route: 042
  2. IRINOTECAN HCL [Suspect]
     Indication: COLON CANCER
     Route: 042
  3. CALCIUM FOLINATE [Suspect]
     Indication: COLON CANCER
     Route: 042
  4. CETUXIMAB [Suspect]
     Indication: COLON CANCER
     Route: 042

REACTIONS (2)
  - Disease progression [Unknown]
  - Colon cancer [Unknown]
